FAERS Safety Report 7927127-1 (Version None)
Quarter: 2011Q4

REPORT INFORMATION
  Report Type: 
  Country: None (occurrence: None)
  Receive Date: 20111118
  Receipt Date: 20111108
  Transmission Date: 20120403
  Serious: Yes (Other)
  Sender: FDA-Public Use
  Company Number: US-JNJFOC-20111103660

PATIENT
  Age: 52 Year
  Sex: Female

DRUGS (2)
  1. REMICADE [Suspect]
     Indication: COLITIS ULCERATIVE
     Route: 042
     Dates: start: 20100101
  2. 5-AMINOSALICYLIC ACID [Concomitant]
     Indication: COLITIS ULCERATIVE
     Route: 048

REACTIONS (5)
  - ASTHENIA [None]
  - SOMNOLENCE [None]
  - PYREXIA [None]
  - DEPRESSION [None]
  - NAUSEA [None]
